FAERS Safety Report 5806961-8 (Version None)
Quarter: 2008Q3

REPORT INFORMATION
  Report Type: 
  Country: None (occurrence: None)
  Receive Date: 20080711
  Receipt Date: 20080703
  Transmission Date: 20090109
  Serious: Yes (Hospitalization)
  Sender: FDA-Public Use
  Company Number: US-ROCHE-562021

PATIENT
  Age: 91 Year
  Sex: Female

DRUGS (2)
  1. BONIVA [Suspect]
     Indication: OSTEOPOROSIS
     Route: 048
     Dates: start: 20070101
  2. ASPIRIN [Concomitant]
     Dosage: DRUG: BABY ASPIRIN

REACTIONS (1)
  - CARDIAC FIBRILLATION [None]
